FAERS Safety Report 11787648 (Version 1)
Quarter: 2015Q4

REPORT INFORMATION
  Report Type: Spontaneous
  Country: US (occurrence: US)
  Receive Date: 20151130
  Receipt Date: 20151130
  Transmission Date: 20160305
  Serious: No
  Sender: FDA-Public Use
  Company Number: US-BAYER-2015-478765

PATIENT
  Age: 2 Year
  Sex: Male
  Weight: 13.61 kg

DRUGS (3)
  1. MULTIFLUORID [Concomitant]
  2. VITAMIN A [Concomitant]
     Active Substance: VITAMIN A
     Dosage: UNK UNK, QD
  3. CHILDREN CLARITIN ALLERGY [Suspect]
     Active Substance: LORATADINE
     Dosage: 2 DF, ONCE
     Route: 048
     Dates: start: 20151125

REACTIONS (1)
  - Accidental exposure to product by child [None]
